FAERS Safety Report 5939617-1 (Version None)
Quarter: 2008Q4

REPORT INFORMATION
  Report Type: 
  Country: None (occurrence: None)
  Receive Date: 20081030
  Receipt Date: 20081030
  Transmission Date: 20090506
  Serious: Yes (Life-Threatening, Other)
  Sender: FDA-Public Use
  Company Number: None

PATIENT
  Age: 33 Year
  Sex: Male
  Weight: 170 kg

DRUGS (2)
  1. SEROQUEL [Suspect]
     Indication: ANXIETY
     Dosage: 25MG TWICE DAILY PO
     Route: 048
     Dates: start: 20080902, end: 20081029
  2. SEROQUEL [Suspect]
     Indication: INTENTIONAL SELF-INJURY
     Dosage: 25MG TWICE DAILY PO
     Route: 048
     Dates: start: 20080902, end: 20081029

REACTIONS (13)
  - AGGRESSION [None]
  - ANXIETY [None]
  - DIARRHOEA [None]
  - DIZZINESS [None]
  - DRUG DOSE OMISSION [None]
  - HAND FRACTURE [None]
  - INAPPROPRIATE SCHEDULE OF DRUG ADMINISTRATION [None]
  - IRRITABILITY [None]
  - NAUSEA [None]
  - PARAESTHESIA [None]
  - PSYCHOTIC DISORDER [None]
  - SOMNOLENCE [None]
  - VOMITING [None]
